FAERS Safety Report 5800221-7 (Version None)
Quarter: 2008Q3

REPORT INFORMATION
  Report Type: 
  Country: None (occurrence: None)
  Receive Date: 20080703
  Receipt Date: 20080620
  Transmission Date: 20090109
  Serious: Yes (Hospitalization)
  Sender: FDA-Public Use
  Company Number: FR-ELI_LILLY_AND_COMPANY-FR200802000697

PATIENT
  Sex: Male
  Weight: 84 kg

DRUGS (6)
  1. CIALIS [Suspect]
     Indication: ERECTILE DYSFUNCTION
     Dosage: 20 MG, AS NEEDED
     Route: 048
     Dates: start: 20070101, end: 20071201
  2. ASPIRIN [Concomitant]
     Indication: THROMBOSIS PROPHYLAXIS
     Dosage: 75 MG, DAILY (1/D)
     Route: 048
     Dates: start: 19980101, end: 20080101
  3. COVERSYL /FRA/ [Concomitant]
     Indication: THROMBOSIS PROPHYLAXIS
     Dosage: 4 MG, DAILY (1/D)
     Route: 048
     Dates: start: 19980101
  4. TAHOR [Concomitant]
     Indication: THROMBOSIS PROPHYLAXIS
     Dosage: 40 MG, DAILY (1/D)
     Route: 048
     Dates: start: 19980101
  5. AMLOR [Concomitant]
     Indication: THROMBOSIS PROPHYLAXIS
     Dosage: 5 MG, DAILY (1/D)
     Route: 048
     Dates: start: 19980101
  6. HAVLANE [Concomitant]
     Indication: SLEEP DISORDER
     Dosage: 1 D/F IN EVENING, 3/W
     Route: 065
     Dates: start: 19980101

REACTIONS (1)
  - ISCHAEMIC STROKE [None]
